FAERS Safety Report 4995391-7 (Version None)
Quarter: 2006Q2

REPORT INFORMATION
  Report Type: 
  Country: None (occurrence: None)
  Receive Date: 20060503
  Receipt Date: 20060420
  Transmission Date: 20061013
  Serious: Yes (Other)
  Sender: FDA-Public Use
  Company Number: 2006S1003489

PATIENT
  Age: 37 Year
  Sex: Female
  Weight: 53.5244 kg

DRUGS (1)
  1. PHENYTEK CAPSULES, USP (300 MG) [Suspect]
     Indication: CONVULSION
     Dosage: 300 MG;QD;ORAL
     Route: 048
     Dates: start: 20060410, end: 20060419

REACTIONS (7)
  - CONVULSION [None]
  - DYSPHAGIA [None]
  - MUSCLE SPASMS [None]
  - TENDERNESS [None]
  - THROAT TIGHTNESS [None]
  - TREMOR [None]
  - UNRESPONSIVE TO VERBAL STIMULI [None]
